FAERS Safety Report 8422726-5 (Version None)
Quarter: 2012Q2

REPORT INFORMATION
  Report Type: 
  Country: None (occurrence: None)
  Receive Date: 20120608
  Receipt Date: 20120606
  Transmission Date: 20120825
  Serious: Yes (Other)
  Sender: FDA-Public Use
  Company Number: US-ROCHE-778399

PATIENT
  Sex: Female
  Weight: 59.928 kg

DRUGS (7)
  1. ASACOL [Concomitant]
  2. ACCUTANE [Suspect]
     Route: 065
     Dates: start: 20040401, end: 20040501
  3. LIALDA [Concomitant]
  4. IMODIUM [Concomitant]
  5. AMNESTEEM [Suspect]
     Indication: ACNE
     Dosage: THERAPY DISCONTINUED
     Route: 065
  6. ACCUTANE [Suspect]
     Indication: ACNE CYSTIC
     Route: 065
     Dates: start: 19990101, end: 19990801
  7. AMNESTEEM [Suspect]
     Route: 065

REACTIONS (4)
  - INFLAMMATORY BOWEL DISEASE [None]
  - EMOTIONAL DISTRESS [None]
  - IRRITABLE BOWEL SYNDROME [None]
  - COLITIS ULCERATIVE [None]
